FAERS Safety Report 8771253 (Version 1)
Quarter: 2012Q4

REPORT INFORMATION
  Report Type: Report from Study
  Country: JP (occurrence: JP)
  Receive Date: 20120905
  Receipt Date: 20120905
  Transmission Date: 20130627
  Serious: Yes (Hospitalization)
  Sender: FDA-Public Use
  Company Number: JP-VERTEX PHARMACEUTICAL INC.-2012-020416

PATIENT
  Age: 59 Year
  Sex: Male

DRUGS (3)
  1. VX-950 [Suspect]
     Indication: HEPATITIS C
     Dosage: 2250 mg, qd
     Route: 048
     Dates: start: 20120806, end: 20120813
  2. PEGINTRON                          /01543001/ [Suspect]
     Indication: HEPATITIS C
     Dosage: 1.5 ug/kg/week
     Route: 058
     Dates: start: 20120806, end: 20120813
  3. REBETOL [Suspect]
     Indication: HEPATITIS C
     Dosage: 1000 mg, UNK
     Route: 048
     Dates: start: 20120806, end: 20120813

REACTIONS (1)
  - Renal disorder [Recovered/Resolved]
